FAERS Safety Report 5341803-9 (Version None)
Quarter: 2007Q2

REPORT INFORMATION
  Report Type: 
  Country: None (occurrence: None)
  Receive Date: 20070601
  Receipt Date: 20070522
  Transmission Date: 20071010
  Serious: Yes (Hospitalization, Other)
  Sender: FDA-Public Use
  Company Number: GB-JNJFOC-20070505521

PATIENT
  Sex: Male
  Weight: 100 kg

DRUGS (11)
  1. REMICADE [Suspect]
     Indication: RHEUMATOID ARTHRITIS
     Route: 042
  2. SULFASALAZINE [Concomitant]
  3. METHOTREXATE SODIUM [Concomitant]
  4. PREDNISOLONE [Concomitant]
  5. AMLODIPINE [Concomitant]
  6. CODEINE PHOSPHATE [Concomitant]
  7. DICLOFENAC SODIUM [Concomitant]
  8. FOLIC ACID [Concomitant]
  9. FOSINOPRIL SODIUM [Concomitant]
  10. INHALERS [Concomitant]
  11. PARACETAMOL [Concomitant]

REACTIONS (2)
  - BASAL CELL CARCINOMA [None]
  - NEOPLASM MALIGNANT [None]
